FAERS Safety Report 5210485-9 (Version None)
Quarter: 2006Q4

REPORT INFORMATION
  Report Type: 
  Country: None (occurrence: None)
  Receive Date: 20061106
  Receipt Date: 20060316
  Transmission Date: 20070319
  Serious: Yes (Other)
  Sender: FDA-Public Use
  Company Number: US-JNJFOC-20050903854

PATIENT
  Age: 82 Year
  Sex: Male
  Weight: 68.0396 kg

DRUGS (7)
  1. IBUPROFEN [Suspect]
     Indication: INFLAMMATION
     Dosage: 600 MG, 1 IN 1 DAY
     Dates: start: 20030101, end: 20040901
  2. PENTASA [Suspect]
     Indication: INFLAMMATORY BOWEL DISEASE
     Dosage: 1000 MG, 3 IN 1 DAY
     Dates: start: 20040701
  3. METOPROLOL TARTRATE [Concomitant]
  4. HYDROCHLOROTHIAZIDE [Concomitant]
  5. NIFEDIPINE [Concomitant]
  6. OMEPRAZOLE [Concomitant]
  7. ASTELIN (AZELASTINE HYDROCHLORIDE) SPRAY [Concomitant]

REACTIONS (1)
  - NEPHROPATHY TOXIC [None]
